FAERS Safety Report 4637408-5 (Version None)
Quarter: 2005Q2

REPORT INFORMATION
  Report Type: 
  Country: None (occurrence: None)
  Receive Date: 20050418
  Receipt Date: 20041013
  Transmission Date: 20051028
  Serious: No
  Sender: FDA-Public Use
  Company Number: US-BRISTOL-MYERS SQUIBB COMPANY-12732707

PATIENT
  Sex: Male

DRUGS (3)
  1. HYDREA [Suspect]
     Indication: PLATELET COUNT INCREASED
     Dosage: 500 MG: 1 CAP/DAY INITIALLY INCREASED TO 3 CAP/DAY
     Route: 048
     Dates: start: 20000713, end: 20000827
  2. LISINOPRIL [Concomitant]
  3. VITAMIN E [Concomitant]

REACTIONS (5)
  - BLOOD URINE PRESENT [None]
  - CHILLS [None]
  - HEADACHE [None]
  - PYREXIA [None]
  - TREMOR [None]
